FAERS Safety Report 17402642 (Version 1)
Quarter: 2020Q1

REPORT INFORMATION
  Report Type: Spontaneous
  Country: CZ (occurrence: CZ)
  Receive Date: 20200211
  Receipt Date: 20200211
  Transmission Date: 20200409
  Serious: Yes (Hospitalization, Other)
  Sender: FDA-Public Use
  Company Number: CZ-US-PROVELL PHARMACEUTICALS LLC-9144214

PATIENT
  Age: 50 Year
  Sex: Female

DRUGS (2)
  1. EUTHYROX [Suspect]
     Active Substance: LEVOTHYROXINE SODIUM
     Indication: THYROID DISORDER
  2. VESSEL DUE F [Concomitant]
     Active Substance: SULODEXIDE
     Indication: VARICOSE VEIN

REACTIONS (9)
  - Varicose vein [Unknown]
  - Leiomyoma [Unknown]
  - Face oedema [Not Recovered/Not Resolved]
  - Thyroid function test abnormal [Unknown]
  - Skin ulcer [Unknown]
  - Venous thrombosis limb [Unknown]
  - Skin wrinkling [Not Recovered/Not Resolved]
  - Pruritus [Unknown]
  - Hypersensitivity [Not Recovered/Not Resolved]
